FAERS Safety Report 12568908 (Version 1)
Quarter: 2016Q3

REPORT INFORMATION
  Report Type: Spontaneous
  Country: US (occurrence: US)
  Receive Date: 20160719
  Receipt Date: 20160719
  Transmission Date: 20161109
  Serious: No
  Sender: FDA-Public Use
  Company Number: US-ASTRAZENECA-2016SE74695

PATIENT
  Age: 38 Year
  Sex: Male

DRUGS (1)
  1. PRILOSEC OTC [Suspect]
     Active Substance: OMEPRAZOLE MAGNESIUM
     Route: 048
     Dates: end: 20160706

REACTIONS (5)
  - Dyspepsia [Recovering/Resolving]
  - Regurgitation [Recovering/Resolving]
  - Dysgeusia [Recovering/Resolving]
  - Product use issue [Unknown]
  - Gastrooesophageal reflux disease [Recovering/Resolving]
